FAERS Safety Report 16772640 (Version 21)
Quarter: 2021Q3

REPORT INFORMATION
  Report Type: Spontaneous
  Country: US (occurrence: US)
  Receive Date: 20190904
  Receipt Date: 20210928
  Transmission Date: 20211014
  Serious: Yes (Hospitalization, Other)
  Sender: FDA-Public Use
  Company Number: US-PFIZER INC-2019379024

PATIENT
  Age: 22 Year
  Sex: Female
  Weight: 50.79 kg

DRUGS (3)
  1. PREMARIN [Suspect]
     Active Substance: ESTROGENS, CONJUGATED
     Indication: HORMONE REPLACEMENT THERAPY
     Dosage: 3.75 MG, 1X/DAY (THREE TABLETS ONCE DAILY)
     Route: 048
     Dates: start: 1971
  2. AMLODIPINE [Concomitant]
     Active Substance: AMLODIPINE BESYLATE
     Dosage: 2.5 MG, UNK
     Dates: start: 2015
  3. PREMARIN [Suspect]
     Active Substance: ESTROGENS, CONJUGATED
     Indication: ALBRIGHT^S DISEASE
     Dosage: 3.75 MG, DAILY (THREE TABLETS ONCE AT NIGHT)
     Route: 048

REACTIONS (20)
  - Hypertension [Unknown]
  - Vaginal discharge [Unknown]
  - Tourette^s disorder [Unknown]
  - Neoplasm malignant [Recovered/Resolved]
  - Bone disorder [Unknown]
  - Off label use [Unknown]
  - Malignant melanoma [Recovered/Resolved]
  - Illness [Unknown]
  - Tooth loss [Unknown]
  - Oral candidiasis [Unknown]
  - Uterine cancer [Recovered/Resolved]
  - Colon cancer [Unknown]
  - Asthenia [Unknown]
  - Candida infection [Not Recovered/Not Resolved]
  - Head injury [Unknown]
  - Neck injury [Recovered/Resolved]
  - Panic disorder [Unknown]
  - Feeling abnormal [Not Recovered/Not Resolved]
  - Joint dislocation [Unknown]
  - Fungal infection [Unknown]

NARRATIVE: CASE EVENT DATE: 1971
